FAERS Safety Report 25868996 (Version 1)
Quarter: 2025Q3

REPORT INFORMATION
  Report Type: Spontaneous
  Country: US (occurrence: None)
  Receive Date: 20250930
  Receipt Date: 20250930
  Transmission Date: 20251020
  Serious: Yes (Death)
  Sender: FDA-CTU
  Company Number: None

PATIENT
  Age: 86 Year
  Sex: Female

DRUGS (14)
  1. PROLIA [Suspect]
     Active Substance: DENOSUMAB
     Indication: Senile osteoporosis
     Dates: start: 20240327, end: 20250501
  2. POTASSIUM CHLORIDE [Concomitant]
     Active Substance: POTASSIUM CHLORIDE
  3. GLYBURIDE [Concomitant]
     Active Substance: GLYBURIDE
  4. WARFARIN SODIUM [Concomitant]
     Active Substance: WARFARIN SODIUM
  5. TORSEMIDE [Concomitant]
     Active Substance: TORSEMIDE
  6. DOCUSATE SODIUM [Concomitant]
     Active Substance: DOCUSATE SODIUM
  7. METOPROLOL SUCCINATE [Concomitant]
     Active Substance: METOPROLOL SUCCINATE
  8. AMIODARONE [Concomitant]
     Active Substance: AMIODARONE
  9. FERROUS SULFATE [Concomitant]
     Active Substance: FERROUS SULFATE
  10. ACYCLOIR [Concomitant]
  11. DEXAMETHASONE [Concomitant]
     Active Substance: DEXAMETHASONE
  12. DORZOLAMIDE 2% OPTH SOLN [Concomitant]
  13. TIMOLOL 0.25% GF OPHTH SOLN [Concomitant]
  14. VYZULTA 0.024% OPHTH SOLUTION [Concomitant]

REACTIONS (1)
  - Death [None]

NARRATIVE: CASE EVENT DATE: 20250930
